FAERS Safety Report 9070957 (Version 1)
Quarter: 2013Q1

REPORT INFORMATION
  Report Type: Report from Study
  Country: JP (occurrence: JP)
  Receive Date: 20130129
  Receipt Date: 20130129
  Transmission Date: 20140127
  Serious: Yes (Other)
  Sender: FDA-Public Use
  Company Number: JP-GLAXOSMITHKLINE-B0859889A

PATIENT
  Age: 28 None
  Sex: Female
  Weight: 43 kg

DRUGS (3)
  1. ARRANON [Suspect]
     Indication: T-CELL TYPE ACUTE LEUKAEMIA
     Dosage: 1500MGM2 PER DAY
     Route: 042
     Dates: start: 20080701, end: 20080701
  2. TIENAM [Concomitant]
     Route: 042
     Dates: start: 20080628, end: 20080706
  3. TARGOCID [Concomitant]
     Route: 042
     Dates: start: 20080628, end: 20080706

REACTIONS (2)
  - Bone marrow failure [Recovering/Resolving]
  - Gait disturbance [Not Recovered/Not Resolved]
